FAERS Safety Report 17786201 (Version 1)
Quarter: 2020Q2

REPORT INFORMATION
  Report Type: Spontaneous
  Country: FR (occurrence: FR)
  Receive Date: 20200513
  Receipt Date: 20200513
  Transmission Date: 20200714
  Serious: Yes (Death, Hospitalization, Other)
  Sender: FDA-Public Use
  Company Number: FR-EUSA PHARMA-2015-FR-000789

PATIENT

DRUGS (6)
  1. ASPARAGINASE [Suspect]
     Active Substance: ASPARAGINASE
     Indication: ANGIOCENTRIC LYMPHOMA
  2. METHOTREXATE. [Concomitant]
     Active Substance: METHOTREXATE
     Indication: ANGIOCENTRIC LYMPHOMA
  3. OXALIPLATIN. [Concomitant]
     Active Substance: OXALIPLATIN
     Indication: ANGIOCENTRIC LYMPHOMA
  4. PEGASPARGASE [Suspect]
     Active Substance: PEGASPARGASE
     Indication: ANGIOCENTRIC LYMPHOMA
     Route: 065
  5. GEMCITABINE. [Concomitant]
     Active Substance: GEMCITABINE
     Indication: ANGIOCENTRIC LYMPHOMA
  6. DEXAMETHASONE [DEXAMETHASONE SODIUM SUCCINATE] [Concomitant]
     Indication: ANGIOCENTRIC LYMPHOMA

REACTIONS (5)
  - Encephalopathy [Fatal]
  - Hepatic failure [Fatal]
  - Acute kidney injury [Unknown]
  - Anuria [Unknown]
  - Acute respiratory distress syndrome [Unknown]

NARRATIVE: CASE EVENT DATE: 2014
